FAERS Safety Report 5860488-6 (Version None)
Quarter: 2008Q3

REPORT INFORMATION
  Report Type: 
  Country: None (occurrence: None)
  Receive Date: 20080827
  Receipt Date: 20080122
  Transmission Date: 20090109
  Serious: No
  Sender: FDA-Public Use
  Company Number: US-ABBOTT-07P-163-0419144-00

PATIENT
  Sex: Male
  Weight: 109 kg

DRUGS (2)
  1. NIASPAN [Suspect]
     Indication: LOW DENSITY LIPOPROTEIN DECREASED
     Route: 048
     Dates: start: 20070910
  2. NIASPAN [Suspect]
     Dosage: WHITE NON-COATED
     Route: 048
     Dates: start: 19980101, end: 20070910

REACTIONS (2)
  - CARDIAC FLUTTER [None]
  - ERUCTATION [None]
